FAERS Safety Report 8056596-4 (Version None)
Quarter: 2012Q1

REPORT INFORMATION
  Report Type: 
  Country: None (occurrence: None)
  Receive Date: 20120119
  Receipt Date: 20120113
  Transmission Date: 20120608
  Serious: No
  Sender: FDA-Public Use
  Company Number: US-BAYER-2012-005094

PATIENT
  Age: 16 Year
  Sex: Male
  Weight: 95 kg

DRUGS (2)
  1. ALEVE (CAPLET) [Suspect]
     Indication: ANALGESIC THERAPY
     Dosage: 2 TABLETS, PRN
     Route: 048
     Dates: start: 20111201, end: 20120101
  2. ALEVE (CAPLET) [Suspect]
     Dosage: 2 TABLETS PRN
     Route: 048
     Dates: start: 20120101, end: 20120101

REACTIONS (1)
  - FAECES DISCOLOURED [None]
